FAERS Safety Report 10855107 (Version 1)
Quarter: 2015Q1

REPORT INFORMATION
  Report Type: Spontaneous
  Country: US (occurrence: None)
  Receive Date: 20150218
  Receipt Date: 20150218
  Transmission Date: 20150721
  Serious: No
  Sender: FDA-Public Use
  Company Number: None

PATIENT
  Age: 70 Year
  Sex: Male

DRUGS (1)
  1. CIPROFLOXACIN. [Suspect]
     Active Substance: CIPROFLOXACIN
     Indication: DIVERTICULITIS
     Dosage: 14 TABS
     Route: 048
     Dates: start: 20150213

REACTIONS (12)
  - Musculoskeletal stiffness [None]
  - Vision blurred [None]
  - Pruritus [None]
  - Toxicity to various agents [None]
  - Throat irritation [None]
  - Headache [None]
  - Arthralgia [None]
  - Nausea [None]
  - Feeling abnormal [None]
  - Vomiting [None]
  - Neck pain [None]
  - Pharyngeal oedema [None]

NARRATIVE: CASE EVENT DATE: 20150214
